FAERS Safety Report 24068639 (Version 2)
Quarter: 2024Q3

REPORT INFORMATION
  Report Type: Report from Study
  Country: US (occurrence: US)
  Receive Date: 20240710
  Receipt Date: 20240710
  Transmission Date: 20241017
  Serious: No
  Sender: ROCHE
  Company Number: US-ROCHE-3548813

PATIENT
  Age: 65 Year
  Sex: Female
  Weight: 132.2 kg

DRUGS (2)
  1. ROZLYTREK [Suspect]
     Active Substance: ENTRECTINIB
     Indication: Malignant melanoma
     Route: 048
     Dates: start: 20240209
  2. ROZLYTREK [Suspect]
     Active Substance: ENTRECTINIB
     Indication: Malignant melanoma

REACTIONS (2)
  - Off label use [Unknown]
  - No adverse event [Unknown]
